FAERS Safety Report 7015214-4 (Version None)
Quarter: 2010Q3

REPORT INFORMATION
  Report Type: 
  Country: None (occurrence: None)
  Receive Date: 20100927
  Receipt Date: 20100916
  Transmission Date: 20110219
  Serious: Yes (Other)
  Sender: FDA-Public Use
  Company Number: PHHY2010RU50813

PATIENT
  Sex: Female

DRUGS (3)
  1. GLEEVEC [Suspect]
     Indication: GASTROINTESTINAL STROMAL TUMOUR
     Dosage: 600 MG DAILY
     Route: 048
     Dates: start: 20070501
  2. ANTIBIOTICS [Concomitant]
  3. ANTIMYCOBACTERIALS [Concomitant]

REACTIONS (5)
  - DIARRHOEA [None]
  - DISBACTERIOSIS [None]
  - DRUG INEFFECTIVE [None]
  - DRUG LEVEL DECREASED [None]
  - SURGERY [None]
